FAERS Safety Report 18282944 (Version 1)
Quarter: 2020Q3

REPORT INFORMATION
  Report Type: Spontaneous
  Country: GB (occurrence: GB)
  Receive Date: 20200918
  Receipt Date: 20200918
  Transmission Date: 20201103
  Serious: Yes (Life-Threatening)
  Sender: FDA-Public Use
  Company Number: GB-TEVA-2020-GB-1828296

PATIENT
  Age: 71 Year
  Sex: Male
  Weight: 99 kg

DRUGS (7)
  1. ALLOPURINOL. [Suspect]
     Active Substance: ALLOPURINOL
     Dosage: 100 MG
     Dates: start: 20200722
  2. COLECALCIFEROL [Concomitant]
     Active Substance: CHOLECALCIFEROL
     Dosage: 2 DOSAGE FORMS
     Dates: start: 20190805
  3. SILDENAFIL. [Concomitant]
     Active Substance: SILDENAFIL
     Dosage: PRIOR TO SEXUAL ACTIVITY
     Dates: start: 20200129
  4. FEXOFENADINE [Concomitant]
     Active Substance: FEXOFENADINE HYDROCHLORIDE
     Dosage: 1 DOSAGE FORMS
     Dates: start: 20200806
  5. HYPROMELLOSE [Concomitant]
     Active Substance: HYPROMELLOSES
     Dosage: 1 GTT
     Dates: start: 20190805
  6. BECLOMETASONE [Concomitant]
     Active Substance: BECLOMETHASONE DIPROPIONATE
     Dosage: PUFFS, 8 DOSAGE FORMS
     Route: 045
     Dates: start: 20190805
  7. TESTOSTERONE. [Concomitant]
     Active Substance: TESTOSTERONE
     Dosage: UP TO 2 PUFFS
     Dates: start: 20200129

REACTIONS (3)
  - Wheezing [Recovering/Resolving]
  - Dyspnoea [Unknown]
  - Dermatitis allergic [Recovering/Resolving]

NARRATIVE: CASE EVENT DATE: 20200813
